FAERS Safety Report 18752004 (Version 1)
Quarter: 2021Q1

REPORT INFORMATION
  Report Type: Spontaneous
  Country: IT (occurrence: IT)
  Receive Date: 20210118
  Receipt Date: 20210118
  Transmission Date: 20210419
  Serious: Yes (Other)
  Sender: FDA-Public Use
  Company Number: IT-009507513-2101ITA007178

PATIENT
  Age: 58 Year
  Sex: Female

DRUGS (1)
  1. PEMBROLIZUMAB. [Suspect]
     Active Substance: PEMBROLIZUMAB
     Indication: LUNG ADENOCARCINOMA
     Dosage: 200 MG, EVERY 3 WEEKS

REACTIONS (1)
  - Encephalitis brain stem [Recovered/Resolved]

NARRATIVE: CASE EVENT DATE: 201912
